FAERS Safety Report 11217050 (Version 1)
Quarter: 2015Q2

REPORT INFORMATION
  Report Type: Spontaneous
  Country: US (occurrence: US)
  Receive Date: 20150624
  Receipt Date: 20150624
  Transmission Date: 20150821
  Serious: Yes (Other)
  Sender: FDA-Public Use
  Company Number: US-BAXTER-2015BAX033976

PATIENT
  Age: 43 Year
  Sex: Female

DRUGS (1)
  1. 1.5% GLYCINE IRRIGATION, USP [Suspect]
     Active Substance: GLYCINE
     Indication: IRRIGATION THERAPY
     Route: 067

REACTIONS (4)
  - Toxicity to various agents [Recovered/Resolved]
  - Pulmonary oedema [Recovered/Resolved]
  - Hyponatraemia [Recovered/Resolved]
  - Status epilepticus [Recovered/Resolved]
